FAERS Safety Report 7367800-X (Version None)
Quarter: 2011Q1

REPORT INFORMATION
  Report Type: 
  Country: None (occurrence: None)
  Receive Date: 20110322
  Receipt Date: 20110308
  Transmission Date: 20110831
  Serious: Yes (Other)
  Sender: FDA-Public Use
  Company Number: US-BAYER-2011-021960

PATIENT
  Age: 17 Year
  Sex: Male
  Weight: 73 kg

DRUGS (2)
  1. ALKA-SELTZER PLUS COLD MEDICINE - CHERRY BURST [Suspect]
     Indication: PYREXIA
  2. ALKA-SELTZER PLUS COLD MEDICINE - CHERRY BURST [Suspect]
     Indication: NASOPHARYNGITIS
     Dosage: 2 DF, QD
     Route: 048
     Dates: start: 20110307, end: 20110307

REACTIONS (6)
  - VISUAL IMPAIRMENT [None]
  - PRESYNCOPE [None]
  - LOSS OF CONSCIOUSNESS [None]
  - DISORIENTATION [None]
  - PYREXIA [None]
  - INFLUENZA LIKE ILLNESS [None]
